FAERS Safety Report 4723401-0 (Version None)
Quarter: 2005Q3

REPORT INFORMATION
  Report Type: 
  Country: None (occurrence: None)
  Receive Date: 20050721
  Receipt Date: 20050721
  Transmission Date: 20060218
  Serious: Yes (Life-Threatening)
  Sender: FDA-Public Use
  Company Number: None

PATIENT
  Age: 52 Year
  Sex: Male

DRUGS (4)
  1. GATIFLOXACIN [Suspect]
     Indication: UROSEPSIS
     Dosage: 200 MG DAILY INTRAVENOUS
     Route: 042
     Dates: start: 20041129, end: 20041206
  2. METOPROLOL [Concomitant]
  3. NPH INSULIN [Concomitant]
  4. PREDNISONE [Concomitant]

REACTIONS (1)
  - HYPOGLYCAEMIA [None]
